FAERS Safety Report 5661751-4 (Version None)
Quarter: 2008Q1

REPORT INFORMATION
  Report Type: 
  Country: None (occurrence: None)
  Receive Date: 20080312
  Receipt Date: 20080304
  Transmission Date: 20080703
  Serious: Yes (Other)
  Sender: FDA-Public Use
  Company Number: FR-ABBOTT-08P-056-0440846-00

PATIENT
  Age: 13 Year
  Sex: Female

DRUGS (2)
  1. MICROPAKINE GRANULE [Suspect]
     Indication: EPILEPSY
     Route: 048
     Dates: start: 20080101
  2. TOPIRAMATE [Concomitant]
     Indication: EPILEPSY
     Route: 048
     Dates: end: 20080215

REACTIONS (2)
  - EPILEPSY [None]
  - EXPIRED DRUG ADMINISTERED [None]
